FAERS Safety Report 15265004 (Version 1)
Quarter: 2018Q3

REPORT INFORMATION
  Report Type: Report from Study
  Country: US (occurrence: US)
  Receive Date: 20180810
  Receipt Date: 20180810
  Transmission Date: 20181010
  Serious: Yes (Death)
  Sender: FDA-Public Use
  Company Number: US-ASTRAZENECA-2018SE76412

PATIENT
  Sex: Female

DRUGS (1)
  1. LYNPARZA [Suspect]
     Active Substance: OLAPARIB
     Indication: PANCREATIC CARCINOMA
     Route: 048
     Dates: start: 20180608

REACTIONS (6)
  - Hypersomnia [Unknown]
  - Neuropathy peripheral [Unknown]
  - Death [Fatal]
  - Off label use [Unknown]
  - Constipation [Unknown]
  - Product use in unapproved indication [Unknown]
